APPROVED DRUG PRODUCT: METAXALONE
Active Ingredient: METAXALONE
Strength: 400MG
Dosage Form/Route: TABLET;ORAL
Application: A040486 | Product #001 | TE Code: AB
Applicant: MOUNTAIN LLC
Approved: Feb 27, 2015 | RLD: No | RS: No | Type: RX